FAERS Safety Report 7989709-0 (Version None)
Quarter: 2011Q4

REPORT INFORMATION
  Report Type: 
  Country: None (occurrence: None)
  Receive Date: 20111215
  Receipt Date: 20110928
  Transmission Date: 20120403
  Serious: Yes (Death)
  Sender: FDA-Public Use
  Company Number: 2011001677

PATIENT
  Age: 80 Year
  Sex: Female
  Weight: 49 kg

DRUGS (5)
  1. AMLODIPINE [Concomitant]
  2. SPIRIVA (TIOTROPIUM BROMIDE0 [Concomitant]
  3. LISINOPRIL [Concomitant]
  4. ERLOTINIB HYDROCHLORIDE [Suspect]
     Indication: NON-SMALL CELL LUNG CANCER
     Dosage: 150 MG, UID/QD, ORAL
     Route: 048
     Dates: start: 20110309, end: 20110326
  5. ZOFRAN [Concomitant]

REACTIONS (7)
  - INCREASED UPPER AIRWAY SECRETION [None]
  - BLOOD SODIUM DECREASED [None]
  - BLOOD CHLORIDE DECREASED [None]
  - NAUSEA [None]
  - WEIGHT DECREASED [None]
  - FATIGUE [None]
  - DECREASED APPETITE [None]
